FAERS Safety Report 10028134 (Version 7)
Quarter: 2016Q2

REPORT INFORMATION
  Report Type: Spontaneous
  Country: US (occurrence: US)
  Receive Date: 20140321
  Receipt Date: 20160405
  Transmission Date: 20160815
  Serious: Yes (Hospitalization, Other)
  Sender: FDA-Public Use
  Company Number: US-009507513-1403USA007766

PATIENT
  Sex: Female

DRUGS (3)
  1. FOSAMAX [Suspect]
     Active Substance: ALENDRONATE SODIUM
     Indication: OSTEOPOROSIS
     Dosage: 70 MG, QW
     Route: 048
     Dates: start: 20060627, end: 20110817
  2. ALENDRONATE SODIUM. [Suspect]
     Active Substance: ALENDRONATE SODIUM
     Indication: OSTEOPOROSIS
     Dosage: 70 MG, QW
     Route: 048
     Dates: start: 20080206, end: 201108
  3. VITAMINS (UNSPECIFIED) [Concomitant]
     Active Substance: VITAMINS
     Dosage: ONCE DAILY
     Route: 048
     Dates: start: 1994

REACTIONS (38)
  - Fall [Unknown]
  - Calcium deficiency [Unknown]
  - Tooth extraction [Unknown]
  - Bone disorder [Unknown]
  - Dental prosthesis placement [Unknown]
  - Drug ineffective [Unknown]
  - Chronic obstructive pulmonary disease [Unknown]
  - Cholecystectomy [Unknown]
  - Femur fracture [Unknown]
  - Chronic obstructive pulmonary disease [Not Recovered/Not Resolved]
  - Stress [Unknown]
  - Right ventricular failure [Unknown]
  - Hypokalaemia [Unknown]
  - Leukocytosis [Unknown]
  - Kyphosis [Unknown]
  - Rib fracture [Unknown]
  - Fall [Unknown]
  - Humerus fracture [Unknown]
  - Back pain [Not Recovered/Not Resolved]
  - Anxiety [Not Recovered/Not Resolved]
  - Spinal compression fracture [Unknown]
  - Fibula fracture [Unknown]
  - Trigger finger [Unknown]
  - Pain [Unknown]
  - Tibia fracture [Unknown]
  - Lower limb fracture [Unknown]
  - Haemorrhage subcutaneous [Unknown]
  - Atrial fibrillation [Unknown]
  - Inappropriate schedule of drug administration [Unknown]
  - Anaemia [Unknown]
  - Blood potassium decreased [Unknown]
  - Depression [Not Recovered/Not Resolved]
  - Emphysema [Unknown]
  - Oral surgery [Unknown]
  - Dental implantation [Unknown]
  - Spinal compression fracture [Unknown]
  - Appendicectomy [Unknown]
  - Skin abrasion [Unknown]

NARRATIVE: CASE EVENT DATE: 200701
